FAERS Safety Report 5615828-X (Version None)
Quarter: 2008Q1

REPORT INFORMATION
  Report Type: 
  Country: None (occurrence: None)
  Receive Date: 20080206
  Receipt Date: 20080125
  Transmission Date: 20080703
  Serious: Yes (Hospitalization)
  Sender: FDA-Public Use
  Company Number: US-ELI_LILLY_AND_COMPANY-US200801001522

PATIENT
  Age: 82 Year
  Sex: Male

DRUGS (4)
  1. CYMBALTA [Suspect]
     Indication: NEURALGIA
     Dosage: 30 MG, DAILY (1/D)
     Dates: end: 20080101
  2. TRAMADOL HCL [Concomitant]
     Indication: PAIN
     Dosage: 1 D/F, 2/D
  3. LIDOCAINE [Concomitant]
     Route: 061
  4. LYRICA [Concomitant]

REACTIONS (3)
  - DRUG INTERACTION [None]
  - FALL [None]
  - INCONTINENCE [None]
